FAERS Safety Report 19175570 (Version 1)
Quarter: 2021Q2

REPORT INFORMATION
  Report Type: Report from Study
  Country: CA (occurrence: CA)
  Receive Date: 20210423
  Receipt Date: 20210423
  Transmission Date: 20210717
  Serious: Yes (Hospitalization, Other)
  Sender: FDA-Public Use
  Company Number: CA-PFIZER INC-2021432247

PATIENT
  Age: 79 Year
  Sex: Female

DRUGS (8)
  1. PREDNISONE. [Suspect]
     Active Substance: PREDNISONE
     Dosage: 10 MG, 1X/DAY
     Route: 065
  2. PANTOPRAZOLE [Suspect]
     Active Substance: PANTOPRAZOLE
     Dosage: UNK
     Route: 065
  3. COMBIVENT [Suspect]
     Active Substance: ALBUTEROL SULFATE\IPRATROPIUM BROMIDE
     Dosage: UNK
     Route: 065
  4. AZITHROMYCIN ANHYDROUS. [Suspect]
     Active Substance: AZITHROMYCIN ANHYDROUS
     Dosage: UNK
     Route: 065
  5. SALBUTAMOL SULFATE [Suspect]
     Active Substance: ALBUTEROL SULFATE
     Indication: ASTHMA
     Dosage: UNK
     Route: 065
  6. ARNUITY ELLIPTA [Suspect]
     Active Substance: FLUTICASONE FUROATE
     Dosage: 1 DF, 1X/DAY
     Route: 065
  7. ACETYLCYSTEINE. [Suspect]
     Active Substance: ACETYLCYSTEINE
     Dosage: UNK
     Route: 065
  8. OLODATEROL HYDROCHLORIDE/TIOTROPIUM BROMIDE [Suspect]
     Active Substance: OLODATEROL HYDROCHLORIDE\TIOTROPIUM BROMIDE MONOHYDRATE
     Dosage: 2 DF, 1X/DAY
     Route: 065

REACTIONS (15)
  - Bronchiectasis [Unknown]
  - Therapeutic product effect incomplete [Unknown]
  - Asthma [Unknown]
  - Blood count abnormal [Unknown]
  - Hypertension [Unknown]
  - Symptom recurrence [Unknown]
  - Wheezing [Unknown]
  - Dyspnoea exertional [Unknown]
  - Obstructive airways disorder [Unknown]
  - Productive cough [Unknown]
  - Rhinorrhoea [Unknown]
  - Eosinophil count increased [Unknown]
  - Loss of personal independence in daily activities [Unknown]
  - Dyspnoea [Unknown]
  - Sleep disorder due to a general medical condition [Unknown]
